FAERS Safety Report 17866369 (Version 2)
Quarter: 2020Q2

REPORT INFORMATION
  Report Type: Report from Study
  Country: FI (occurrence: FI)
  Receive Date: 20200605
  Receipt Date: 20200609
  Transmission Date: 20200714
  Serious: Yes (Death, Other)
  Sender: FDA-Public Use
  Company Number: NVSC2020FI155128

PATIENT
  Age: 47 Year
  Sex: Female

DRUGS (3)
  1. BYL719 [Suspect]
     Active Substance: ALPELISIB
     Indication: BREAST CANCER METASTATIC
     Dosage: UNK (TABLET)
     Route: 048
     Dates: start: 20200301
  2. FULVESTRANT. [Concomitant]
     Active Substance: FULVESTRANT
     Indication: PRODUCT USED FOR UNKNOWN INDICATION
     Route: 065
  3. BYL719 [Suspect]
     Active Substance: ALPELISIB
     Dosage: UNK (TABLET)
     Route: 048
     Dates: end: 202004

REACTIONS (4)
  - Hepatic failure [Fatal]
  - Hepatomegaly [Unknown]
  - Malignant neoplasm progression [Unknown]
  - Breast cancer metastatic [Unknown]

NARRATIVE: CASE EVENT DATE: 2020
